FAERS Safety Report 18313979 (Version 1)
Quarter: 2020Q3

REPORT INFORMATION
  Report Type: Report from Study
  Country: CA (occurrence: CA)
  Receive Date: 20200925
  Receipt Date: 20200925
  Transmission Date: 20201103
  Serious: Yes (Other)
  Sender: FDA-Public Use
  Company Number: CA-JNJFOC-20200931142

PATIENT
  Age: 11 Year
  Sex: Male

DRUGS (1)
  1. REMICADE [Suspect]
     Active Substance: INFLIXIMAB
     Indication: COLITIS ULCERATIVE
     Dosage: ON 15?SEP?2020, THE PATIENT RECEIVED 18TH DOSE OF 300MG INFLIXIMB INFUSION.
     Route: 042
     Dates: start: 20190418

REACTIONS (3)
  - Haematochezia [Not Recovered/Not Resolved]
  - Epistaxis [Not Recovered/Not Resolved]
  - General physical health deterioration [Unknown]

NARRATIVE: CASE EVENT DATE: 20200914
